FAERS Safety Report 4398485-2 (Version None)
Quarter: 2004Q3

REPORT INFORMATION
  Report Type: 
  Country: None (occurrence: None)
  Receive Date: 20040714
  Receipt Date: 20040714
  Transmission Date: 20050211
  Serious: Yes (Hospitalization)
  Sender: FDA-Public Use
  Company Number: None

PATIENT
  Age: 74 Year
  Sex: Male
  Weight: 86 kg

DRUGS (14)
  1. DIGOXIN [Suspect]
     Indication: ATRIAL FIBRILLATION
     Dosage: 0.25 MG PO DAILY
     Route: 048
  2. ACCUPRIL [Concomitant]
  3. ASPIRIN [Concomitant]
  4. XALATAN [Concomitant]
  5. TRUSOPT [Concomitant]
  6. PILOCARPINE [Concomitant]
  7. TRENTAL [Concomitant]
  8. IMURAN [Concomitant]
  9. CELEBREX [Concomitant]
  10. PREDNISONE [Concomitant]
  11. PLAVIX [Concomitant]
  12. ZOCOR [Concomitant]
  13. NADOLOL [Concomitant]
  14. VIT E [Concomitant]

REACTIONS (7)
  - ANAEMIA [None]
  - AORTIC STENOSIS [None]
  - ASTHENIA [None]
  - DECREASED APPETITE [None]
  - DEHYDRATION [None]
  - THERAPEUTIC AGENT TOXICITY [None]
  - URINARY TRACT INFECTION [None]
